FAERS Safety Report 10174047 (Version 1)
Quarter: 2014Q2

REPORT INFORMATION
  Report Type: Spontaneous
  Country: US (occurrence: None)
  Receive Date: 20140514
  Receipt Date: 20140514
  Transmission Date: 20141212
  Serious: Yes (Disabling)
  Sender: FDA-Public Use
  Company Number: None

PATIENT
  Age: 88 Year
  Sex: Female
  Weight: 66.23 kg

DRUGS (1)
  1. TRAZODONE [Suspect]
     Indication: INSOMNIA
     Dosage: 1 TABLET AT BEDTIME TAKEN BY MOUTH
     Route: 048
     Dates: start: 20140508, end: 20140508

REACTIONS (2)
  - Decreased activity [None]
  - Paralysis [None]
